FAERS Safety Report 5209164-3 (Version None)
Quarter: 2007Q1

REPORT INFORMATION
  Report Type: 
  Country: None (occurrence: None)
  Receive Date: 20070104
  Receipt Date: 20061219
  Transmission Date: 20070707
  Serious: Yes (Other)
  Sender: FDA-Public Use
  Company Number: 200610345BBE

PATIENT
  Age: 28 Year
  Sex: Female

DRUGS (15)
  1. PLASBUMIN [Suspect]
     Indication: RENAL TRANSPLANT
  2. EPIDURAL ANESTHESIA [Concomitant]
  3. GENERALIZED ANESTHESIA [Concomitant]
  4. PROPOFOL [Concomitant]
  5. FENTANYL TRANSDERMAL SYSTEM [Concomitant]
  6. VECURONIUM BROMIDE [Concomitant]
  7. SEVOFLURANE [Concomitant]
  8. NITROUS OXIDE W/ OXYGEN [Concomitant]
  9. OXYGEN [Concomitant]
  10. ROPIVACAIN [Concomitant]
  11. FLUID [Concomitant]
  12. DOPAMINE HCL [Concomitant]
  13. HUMAN ATRIAL NATRIURETIC POLYPEPTIDE [Concomitant]
  14. FRESH FROZEN PLASMA [Concomitant]
  15. MANNITOL-ADENINE-PHOSPHATE (MAP) [Concomitant]

REACTIONS (6)
  - BLOOD PRESSURE DECREASED [None]
  - CARDIAC FAILURE [None]
  - COMPLICATIONS OF TRANSPLANT SURGERY [None]
  - FLUID OVERLOAD [None]
  - INCORRECT DOSE ADMINISTERED [None]
  - PULMONARY OEDEMA [None]
